FAERS Safety Report 7643040-1 (Version None)
Quarter: 2011Q3

REPORT INFORMATION
  Report Type: 
  Country: None (occurrence: None)
  Receive Date: 20110728
  Receipt Date: 20110719
  Transmission Date: 20111222
  Serious: Yes (Other)
  Sender: FDA-Public Use
  Company Number: BE-ASTRAZENECA-2011SE43706

PATIENT
  Age: 21094 Day
  Sex: Female
  Weight: 66.5 kg

DRUGS (3)
  1. CRESTOR [Suspect]
     Route: 048
  2. LEVOTHYROXINE SODIUM [Concomitant]
  3. BISOPROLOL FUMARATE [Concomitant]

REACTIONS (2)
  - ADRENAL CARCINOMA [None]
  - HIGH DENSITY LIPOPROTEIN DECREASED [None]
